FAERS Safety Report 8962429 (Version 1)
Quarter: 2012Q4

REPORT INFORMATION
  Report Type: 
  Country: US (occurrence: US)
  Receive Date: 20121213
  Receipt Date: 20121213
  Transmission Date: 20130627
  Serious: Yes (Other)
  Sender: FDA-Public Use
  Company Number: US-BRISTOL-MYERS SQUIBB COMPANY-17172347

PATIENT
  Age: 77 Year
  Sex: Female

DRUGS (1)
  1. ORENCIA FOR INJ 250 MG/VIAL [Suspect]
     Indication: RHEUMATOID ARTHRITIS
     Dosage: Last inf:05Nov2012, next inf:26Dec12
     Route: 042

REACTIONS (3)
  - Foot fracture [Unknown]
  - Drug ineffective [Unknown]
  - Joint crepitation [Unknown]
